FAERS Safety Report 5192016-5 (Version None)
Quarter: 2006Q4

REPORT INFORMATION
  Report Type: 
  Country: None (occurrence: None)
  Receive Date: 20061220
  Receipt Date: 20061220
  Transmission Date: 20070319
  Serious: Yes (Hospitalization)
  Sender: FDA-Public Use
  Company Number: None

PATIENT
  Age: 77 Year
  Sex: Female
  Weight: 68.8 kg

DRUGS (10)
  1. CEFTAZIDIME [Suspect]
     Indication: URINARY TRACT INFECTION
     Dosage: 1 GRAM IV Q8H
     Route: 042
     Dates: start: 20060723
  2. DITROPAN [Concomitant]
  3. LISINOPRIL [Concomitant]
  4. M.V.I. [Concomitant]
  5. METOPROLOL SUCCINATE [Concomitant]
  6. NAMENDA [Concomitant]
  7. CALCIUM [Concomitant]
  8. PROTONIX [Concomitant]
  9. LANTUS [Concomitant]
  10. HUMALOG [Concomitant]

REACTIONS (1)
  - CLOSTRIDIUM DIFFICILE COLITIS [None]
